FAERS Safety Report 21120593 (Version 5)
Quarter: 2022Q4

REPORT INFORMATION
  Report Type: Report from Study
  Country: FR (occurrence: FR)
  Receive Date: 20220722
  Receipt Date: 20221109
  Transmission Date: 20230112
  Serious: Yes (Death, Hospitalization)
  Sender: FDA-Public Use
  Company Number: FR-NOVARTISPH-NVSC2022FR164077

PATIENT
  Age: 71 Year
  Sex: Male

DRUGS (2)
  1. TRAMETINIB [Suspect]
     Active Substance: TRAMETINIB
     Indication: Malignant melanoma
     Dosage: 2 MG QD EVERY 1 DAY(S)
     Route: 048
     Dates: start: 20220519, end: 20220705
  2. HYDROXYCHLOROQUINE [Suspect]
     Active Substance: HYDROXYCHLOROQUINE
     Indication: Malignant melanoma
     Dosage: 800 MG QD EVERY 1 DAY(S)
     Route: 048
     Dates: start: 20220519, end: 20220705

REACTIONS (3)
  - Necrotising myositis [Not Recovered/Not Resolved]
  - Hypoglycaemia [Recovered/Resolved]
  - Sepsis [Fatal]

NARRATIVE: CASE EVENT DATE: 20220614
